FAERS Safety Report 9321871 (Version 1)
Quarter: 2013Q2

REPORT INFORMATION
  Report Type: Spontaneous
  Country: AU (occurrence: None)
  Receive Date: 20130528
  Receipt Date: 20130528
  Transmission Date: 20140414
  Serious: Yes (Life-Threatening, Hospitalization)
  Sender: FDA-Public Use
  Company Number: 2013PL000077

PATIENT
  Age: 69 Year
  Sex: Female

DRUGS (10)
  1. AZATHIOPRINE [Suspect]
     Indication: IMMUNOSUPPRESSION
  2. CYCLOPHOSPHAMIDE [Concomitant]
  3. PERINOPRIL [Concomitant]
  4. PANTOPRAZOLE [Concomitant]
  5. RISEDRONATE [Concomitant]
  6. PREDNISOLONE [Concomitant]
  7. ERYTHROPOIENTIN [Concomitant]
  8. CALCIUM [Concomitant]
  9. VITAMIN D [Concomitant]
  10. WARFARIN [Concomitant]

REACTIONS (8)
  - Cardiogenic shock [None]
  - Multi-organ failure [None]
  - Acute febrile neutrophilic dermatosis [None]
  - Hypotension [None]
  - Venous pressure jugular increased [None]
  - Renal failure acute [None]
  - Pulmonary oedema [None]
  - Drug hypersensitivity [None]
